FAERS Safety Report 11349038 (Version 1)
Quarter: 2015Q3

REPORT INFORMATION
  Report Type: Spontaneous
  Country: US (occurrence: US)
  Receive Date: 20150807
  Receipt Date: 20150807
  Transmission Date: 20151125
  Serious: Yes (Other)
  Sender: FDA-Public Use
  Company Number: US-PFIZER INC-2015256310

PATIENT
  Age: 48 Year
  Sex: Female
  Weight: 79.37 kg

DRUGS (2)
  1. NEURONTIN [Suspect]
     Active Substance: GABAPENTIN
     Indication: PAIN
     Dosage: UNK
     Dates: start: 20150723, end: 201507
  2. ESTRADIOL. [Concomitant]
     Active Substance: ESTRADIOL
     Indication: HORMONE REPLACEMENT THERAPY
     Dosage: UNK
     Dates: start: 2004

REACTIONS (7)
  - Product use issue [Unknown]
  - Renal impairment [Not Recovered/Not Resolved]
  - Swelling [Not Recovered/Not Resolved]
  - Faeces discoloured [Not Recovered/Not Resolved]
  - Blood urine present [Recovered/Resolved]
  - Rectal haemorrhage [Not Recovered/Not Resolved]
  - Back pain [Not Recovered/Not Resolved]

NARRATIVE: CASE EVENT DATE: 20150723
